FAERS Safety Report 6525595-3 (Version None)
Quarter: 2010Q1

REPORT INFORMATION
  Report Type: 
  Country: None (occurrence: None)
  Receive Date: 20100104
  Receipt Date: 20091225
  Transmission Date: 20100710
  Serious: Yes (Other)
  Sender: FDA-Public Use
  Company Number: JP-PFIZER INC-2009301050

PATIENT
  Age: 30 Year
  Sex: Male
  Weight: 53 kg

DRUGS (9)
  1. ZYVOX [Suspect]
     Indication: TENDONITIS
     Dosage: 1200 MG, 1X/DAY
     Route: 042
     Dates: start: 20090801, end: 20090806
  2. ZYVOX [Suspect]
     Indication: BACTERIAL DISEASE CARRIER
     Dosage: 200 MG, 1X/DAY
     Route: 048
     Dates: start: 20091110, end: 20091113
  3. ZYVOX [Suspect]
  4. TOPIRAMATE [Suspect]
     Dosage: 200 MG, 2X/DAY
     Route: 048
     Dates: start: 20081031
  5. DEPAKENE [Suspect]
     Dosage: 500 MG, 3X/DAY
     Route: 048
     Dates: start: 20081121
  6. LAMICTAL [Suspect]
     Dosage: 100 MG, 2X/DAY
     Route: 048
     Dates: start: 20090204
  7. MYSTAN [Suspect]
     Dosage: 10 MG, 3X/DAY
     Route: 048
     Dates: start: 20081104
  8. TARGOCID [Concomitant]
     Indication: TENDONITIS
     Route: 042
  9. BAKTAR [Concomitant]
     Indication: TENDONITIS

REACTIONS (2)
  - AGITATION [None]
  - HALLUCINATION, VISUAL [None]
